FAERS Safety Report 17891536 (Version 6)
Quarter: 2020Q4

REPORT INFORMATION
  Report Type: Report from Study
  Country: US (occurrence: US)
  Receive Date: 20200612
  Receipt Date: 20201014
  Transmission Date: 20210113
  Serious: Yes (Hospitalization, Other)
  Sender: FDA-Public Use
  Company Number: US-INCYTE CORPORATION-2018IN005538

PATIENT

DRUGS (52)
  1. LOSARTAN POTASSIUM. [Concomitant]
     Active Substance: LOSARTAN POTASSIUM
     Indication: HYPERTENSION
     Dosage: 50 MG, QD
     Route: 048
     Dates: start: 1997, end: 20181028
  2. FAMOTIDINE. [Concomitant]
     Active Substance: FAMOTIDINE
     Indication: GASTROOESOPHAGEAL REFLUX DISEASE
     Dosage: 20 MILLIGRAM, BID
     Route: 065
     Dates: start: 1997
  3. HEPARIN [Concomitant]
     Active Substance: HEPARIN SODIUM
     Indication: MYOCARDIAL INFARCTION
     Dosage: 4000 UNITS
     Route: 065
     Dates: start: 20190201, end: 20190201
  4. FENTANYL. [Concomitant]
     Active Substance: FENTANYL
     Indication: MYOCARDIAL INFARCTION
     Dosage: 0.1 MILLIGRAM
     Route: 065
     Dates: start: 20190202, end: 20190202
  5. JAKAFI [Suspect]
     Active Substance: RUXOLITINIB
     Dosage: 15 MILLIGRAM, BID
     Route: 065
     Dates: start: 20190927, end: 20191115
  6. PANTOPRAZOLE SODIUM. [Concomitant]
     Active Substance: PANTOPRAZOLE SODIUM
     Indication: PRODUCT USED FOR UNKNOWN INDICATION
     Dosage: UNK
     Route: 065
  7. VITAMIN D3 [Concomitant]
     Active Substance: CHOLECALCIFEROL
     Indication: PRODUCT USED FOR UNKNOWN INDICATION
     Dosage: UNK
     Route: 065
  8. METOPROLOL SUCCINATE. [Concomitant]
     Active Substance: METOPROLOL SUCCINATE
     Indication: HYPERTENSION
     Dosage: 50 MILLIGRAM, BID
     Route: 065
     Dates: start: 1997, end: 20180615
  9. METOPROLOL SUCCINATE. [Concomitant]
     Active Substance: METOPROLOL SUCCINATE
     Dosage: 50 MILLIGRAM, QD
     Route: 065
     Dates: start: 20180917, end: 202002
  10. ONDANSETRON [Concomitant]
     Active Substance: ONDANSETRON
     Indication: PROPHYLAXIS OF NAUSEA AND VOMITING
     Dosage: 4 MILLIGRAM, PRN
     Route: 065
     Dates: start: 20180103
  11. SODIUM CHLORIDE. [Concomitant]
     Active Substance: SODIUM CHLORIDE
     Indication: MYOCARDIAL INFARCTION
     Dosage: 75 MILLILITER
     Route: 065
     Dates: start: 20190202, end: 20190203
  12. CARVEDILOL. [Concomitant]
     Active Substance: CARVEDILOL
     Dosage: 12.5 MILLIGRAM, BID
     Route: 065
     Dates: start: 20180615, end: 20180917
  13. CLOPIDOGREL BISULFATE. [Concomitant]
     Active Substance: CLOPIDOGREL BISULFATE
     Dosage: 75 MILLIGRAM, QD
     Route: 065
     Dates: start: 20200615
  14. NIFEDIPINE. [Concomitant]
     Active Substance: NIFEDIPINE
     Indication: HYPERTENSION
     Dosage: 60 MILLIGRAM, BID
     Route: 065
     Dates: start: 1997, end: 20181029
  15. LIDOCAINE. [Concomitant]
     Active Substance: LIDOCAINE
     Indication: MYOCARDIAL INFARCTION
     Dosage: 20 MILLILITER (1%)
     Route: 065
     Dates: start: 20190202, end: 20190202
  16. LIDOCAINE HYDROCHLORIDE AND EPINEPHRINE [Concomitant]
     Active Substance: EPINEPHRINE\LIDOCAINE HYDROCHLORIDE
     Indication: MYOCARDIAL INFARCTION
     Dosage: 20 MILLILITER
     Route: 065
     Dates: start: 20190202, end: 20190202
  17. LABETALOL [Concomitant]
     Active Substance: LABETALOL\LABETALOL HYDROCHLORIDE
     Indication: ANGINA UNSTABLE
     Dosage: 10 MILLIGRAM
     Route: 065
     Dates: start: 20200615, end: 20200615
  18. MAGNESIUM OXIDE. [Concomitant]
     Active Substance: MAGNESIUM OXIDE
     Indication: PROPHYLAXIS
     Dosage: 800 MILLIGRAM
     Route: 065
     Dates: start: 20200615, end: 20200615
  19. AMLODIPINE BESILATE [Concomitant]
     Active Substance: AMLODIPINE BESYLATE
     Dosage: 10 MG, QD
     Route: 048
  20. LOSARTAN POTASSIUM. [Concomitant]
     Active Substance: LOSARTAN POTASSIUM
     Dosage: 50 MG, QD
     Route: 048
     Dates: start: 20181029
  21. ASPIRIN [ACETYLSALICYLIC ACID] [Concomitant]
     Active Substance: ASPIRIN
     Indication: ESSENTIAL THROMBOCYTHAEMIA
     Dosage: 81 MILLIGRAM, QD
     Route: 065
     Dates: start: 20171214
  22. HEPARIN [Concomitant]
     Active Substance: HEPARIN SODIUM
     Dosage: 4000 UNITS
     Route: 065
     Dates: start: 20200616, end: 20200616
  23. JAKAFI [Suspect]
     Active Substance: RUXOLITINIB
     Indication: ESSENTIAL THROMBOCYTHAEMIA
     Dosage: 10 MG, BID
     Route: 048
     Dates: start: 20171229
  24. JAKAFI [Suspect]
     Active Substance: RUXOLITINIB
     Dosage: 15 MILLIGRAM, QD
     Route: 065
     Dates: start: 20191115, end: 20200605
  25. ATORVASTATIN CALCIUM. [Concomitant]
     Active Substance: ATORVASTATIN CALCIUM
     Indication: HYPERLIPIDAEMIA
     Dosage: UNK
     Route: 065
  26. AMLODIPINE BESILATE [Concomitant]
     Active Substance: AMLODIPINE BESYLATE
     Indication: HYPERTENSION
     Dosage: 5 MILLIGRAM, QD
     Route: 065
     Dates: start: 20181029
  27. CARVEDILOL. [Concomitant]
     Active Substance: CARVEDILOL
     Dosage: 75 MG, QD
     Route: 048
  28. VITAMIN D3 [Concomitant]
     Active Substance: CHOLECALCIFEROL
     Dosage: 2000 IU, QD
     Route: 048
  29. HEPARIN [Concomitant]
     Active Substance: HEPARIN SODIUM
     Dosage: 5000 UNITS
     Route: 065
     Dates: start: 20200617, end: 20200618
  30. NITROGLYCERIN. [Concomitant]
     Active Substance: NITROGLYCERIN
     Indication: MYOCARDIAL INFARCTION
     Dosage: 0.1 MILLIGRAM
     Route: 065
     Dates: start: 20190202, end: 20190202
  31. JAKAFI [Suspect]
     Active Substance: RUXOLITINIB
     Indication: MYELOPROLIFERATIVE NEOPLASM
     Dosage: 10 MG, BID
     Route: 048
     Dates: start: 20180209, end: 20190205
  32. PANTOPRAZOLE SODIUM. [Concomitant]
     Active Substance: PANTOPRAZOLE SODIUM
     Dosage: 40 MG, QD
     Route: 048
  33. HYDROCHLOROTHIAZIDE. [Concomitant]
     Active Substance: HYDROCHLOROTHIAZIDE
     Indication: PRODUCT USED FOR UNKNOWN INDICATION
     Dosage: UNK
     Route: 065
  34. NITROGLYCERIN. [Concomitant]
     Active Substance: NITROGLYCERIN
     Indication: ANGINA PECTORIS
     Dosage: 0.4 MILLIGRAM PRN
     Route: 065
     Dates: start: 20200614
  35. MAGNESIUM OXIDE. [Concomitant]
     Active Substance: MAGNESIUM OXIDE
     Indication: HYPOMAGNESAEMIA
  36. SODIUM CHLORIDE 0.9% [Concomitant]
     Active Substance: SODIUM CHLORIDE
     Indication: ANGINA UNSTABLE
     Dosage: 75 MILLILITER
     Route: 065
     Dates: start: 20200616, end: 20200616
  37. HYDROXYUREA. [Concomitant]
     Active Substance: HYDROXYUREA
     Indication: ESSENTIAL THROMBOCYTHAEMIA
     Dosage: 500 MILLIGRAM, BID
     Route: 065
     Dates: start: 20171229, end: 20180209
  38. HYDROXYUREA. [Concomitant]
     Active Substance: HYDROXYUREA
     Dosage: 500 MILLIGRAM, BID
     Route: 065
     Dates: start: 20200605, end: 20200610
  39. HYDROXYUREA. [Concomitant]
     Active Substance: HYDROXYUREA
     Dosage: 500 MILLIGRAM, QD
     Route: 065
     Dates: start: 20200610
  40. HEPARIN [Concomitant]
     Active Substance: HEPARIN SODIUM
     Dosage: 2500/500ML (2500 MG)
     Route: 065
     Dates: start: 20200615, end: 20200616
  41. OXYGEN. [Concomitant]
     Active Substance: OXYGEN
     Indication: MYOCARDIAL INFARCTION
     Dosage: 5 LITER
     Route: 065
     Dates: start: 20190202, end: 20190202
  42. ACETAMINOPHEN. [Concomitant]
     Active Substance: ACETAMINOPHEN
     Indication: PAIN PROPHYLAXIS
     Dosage: 650 MILLIGRAM, PRN
     Route: 065
     Dates: start: 20200615
  43. JAKAFI [Suspect]
     Active Substance: RUXOLITINIB
     Dosage: 15 MILLIGRAM, BID
     Route: 065
     Dates: start: 20190215, end: 20190926
  44. ATORVASTATIN CALCIUM. [Concomitant]
     Active Substance: ATORVASTATIN CALCIUM
     Dosage: 20 MILLIGRAM, QD
     Route: 065
     Dates: start: 1997, end: 20180528
  45. ATORVASTATIN CALCIUM. [Concomitant]
     Active Substance: ATORVASTATIN CALCIUM
     Dosage: 80 MG, QD
     Route: 048
     Dates: start: 20180529
  46. CARVEDILOL. [Concomitant]
     Active Substance: CARVEDILOL
     Indication: HYPERTENSION
     Dosage: 15 MILLIGRAM, BID
     Route: 065
     Dates: start: 20180615, end: 20200605
  47. HYDROCHLOROTHIAZIDE. [Concomitant]
     Active Substance: HYDROCHLOROTHIAZIDE
     Dosage: 12.5 MG, QD
     Route: 048
  48. CLOPIDOGREL BISULFATE. [Concomitant]
     Active Substance: CLOPIDOGREL BISULFATE
     Indication: ARTERIOSCLEROSIS CORONARY ARTERY
     Dosage: 75 MILLIGRAM, QD
     Route: 065
     Dates: start: 1997, end: 202005
  49. RANEXA [Concomitant]
     Active Substance: RANOLAZINE
     Indication: ANGINA PECTORIS
     Dosage: 500 MILLIGRAM, BID
     Route: 065
     Dates: start: 20180529, end: 20181220
  50. HEPARIN [Concomitant]
     Active Substance: HEPARIN SODIUM
     Indication: ANGINA UNSTABLE
     Dosage: 500 MILLILITER
     Route: 065
     Dates: start: 20190201, end: 20190202
  51. HEPARIN [Concomitant]
     Active Substance: HEPARIN SODIUM
     Dosage: 10,000 UNITS
     Route: 065
     Dates: start: 20200616, end: 20200616
  52. MIDAZOLAM. [Concomitant]
     Active Substance: MIDAZOLAM
     Indication: MYOCARDIAL INFARCTION
     Dosage: 2 MILLIGRAM
     Route: 065
     Dates: start: 20190202, end: 20190202

REACTIONS (10)
  - Hypothyroidism [Not Recovered/Not Resolved]
  - Hypokalaemia [Recovered/Resolved]
  - Anaemia [Recovered/Resolved]
  - Anaemia [Not Recovered/Not Resolved]
  - Anaemia [Not Recovered/Not Resolved]
  - Chest pain [Recovered/Resolved]
  - Diarrhoea [Recovered/Resolved]
  - Anaemia [Recovered/Resolved]
  - Post herpetic neuralgia [Recovered/Resolved]
  - Skin cancer [Recovered/Resolved]

NARRATIVE: CASE EVENT DATE: 20180528
